FAERS Safety Report 5387619-9 (Version None)
Quarter: 2007Q3

REPORT INFORMATION
  Report Type: 
  Country: None (occurrence: None)
  Receive Date: 20070716
  Receipt Date: 20070711
  Transmission Date: 20080115
  Serious: Yes (Death, Other)
  Sender: FDA-Public Use
  Company Number: US-GENENTECH-243485

PATIENT
  Age: 76 Year
  Sex: Male

DRUGS (8)
  1. BEVACIZUMAB [Suspect]
     Indication: NON-SMALL CELL LUNG CANCER
     Dosage: 15 MG/KG, UNK
     Dates: start: 20061108, end: 20070228
  2. ERLOTINIB [Suspect]
     Indication: NON-SMALL CELL LUNG CANCER
     Dosage: UNK, UNK
     Dates: start: 20070411
  3. CARBOPLATIN [Suspect]
     Indication: NON-SMALL CELL LUNG CANCER
     Dosage: 6 AUC, UNK
  4. PACLITAXEL [Suspect]
     Indication: NON-SMALL CELL LUNG CANCER
     Dosage: 200 MG/M2, UNK
  5. RADIATION THERAPY [Suspect]
     Indication: NON-SMALL CELL LUNG CANCER
     Dates: start: 20061004, end: 20061017
  6. MORPHINE [Concomitant]
     Indication: DRUG USE FOR UNKNOWN INDICATION
  7. TYLENOL #3 (UNITED STATES) [Concomitant]
     Indication: DRUG USE FOR UNKNOWN INDICATION
  8. PREDNISONE [Concomitant]
     Indication: DRUG USE FOR UNKNOWN INDICATION

REACTIONS (1)
  - BRONCHOPLEURAL FISTULA [None]
